FAERS Safety Report 16836783 (Version 2)
Quarter: 2019Q4

REPORT INFORMATION
  Report Type: Spontaneous
  Country: JP (occurrence: JP)
  Receive Date: 20190922
  Receipt Date: 20191018
  Transmission Date: 20200122
  Serious: Yes (Death)
  Sender: FDA-Public Use
  Company Number: JP-BEH-2019107210

PATIENT
  Age: 71 Year
  Sex: Male

DRUGS (1)
  1. HUMAN IMMUNOGLOBULIN (NC) [Suspect]
     Active Substance: HUMAN IMMUNOGLOBULIN G
     Indication: STEVENS-JOHNSON SYNDROME
     Dosage: 400 MILLIGRAM/KILOGRAM, QD
     Route: 042

REACTIONS (4)
  - Product use in unapproved indication [Unknown]
  - Pulmonary embolism [Fatal]
  - No adverse event [Unknown]
  - Dyspnoea [Fatal]
